FAERS Safety Report 11695796 (Version 10)
Quarter: 2020Q3

REPORT INFORMATION
  Report Type: Spontaneous
  Country: US (occurrence: US)
  Receive Date: 20151104
  Receipt Date: 20200811
  Transmission Date: 20201102
  Serious: Yes (Congenital Anomaly, Other)
  Sender: FDA-Public Use
  Company Number: PHEH2015US022025

PATIENT
  Sex: Male

DRUGS (4)
  1. ZOFRAN [Suspect]
     Active Substance: ONDANSETRON HYDROCHLORIDE
     Indication: FOETAL EXPOSURE DURING PREGNANCY
     Dosage: MOTHER^S DOSE: 4 MG, UNK
     Route: 064
  2. ONDANSETRON [Suspect]
     Active Substance: ONDANSETRON
     Indication: FOETAL EXPOSURE DURING PREGNANCY
     Route: 064
  3. ONDANSETRON [Suspect]
     Active Substance: ONDANSETRON
     Indication: FOETAL EXPOSURE DURING PREGNANCY
     Dosage: MOTHER^S DOSE: 4 MG, PRN
     Route: 064
  4. ZOFRAN [Suspect]
     Active Substance: ONDANSETRON HYDROCHLORIDE
     Indication: FOETAL EXPOSURE DURING PREGNANCY
     Dosage: MOTHER DOSE: 04 MG, QD
     Route: 064

REACTIONS (65)
  - Laevocardia [Unknown]
  - Renal tubular necrosis [Unknown]
  - Acute kidney injury [Unknown]
  - Pulmonary hypertension [Unknown]
  - Hypersensitivity [Unknown]
  - Phimosis [Unknown]
  - Congenital aortic stenosis [Unknown]
  - Ventricular hypoplasia [Unknown]
  - Pulmonary hypoplasia [Unknown]
  - Acute respiratory distress syndrome [Unknown]
  - Ascites [Unknown]
  - Pleural effusion [Recovered/Resolved]
  - Aspiration [Unknown]
  - Aortic valve incompetence [Unknown]
  - Pulmonary artery occlusion [Unknown]
  - Malnutrition [Unknown]
  - Use of accessory respiratory muscles [Unknown]
  - Right ventricular dilatation [Unknown]
  - Pericardial effusion [Unknown]
  - Chronic kidney disease-mineral and bone disorder [Unknown]
  - Hyperkalaemia [Unknown]
  - Bacteraemia [Unknown]
  - Pain [Unknown]
  - Emotional distress [Unknown]
  - Tremor [Unknown]
  - Gastrooesophageal reflux disease [Unknown]
  - Enterococcal bacteraemia [Unknown]
  - Chylothorax [Recovered/Resolved]
  - Acute respiratory failure [Unknown]
  - Anhedonia [Unknown]
  - Rhonchi [Unknown]
  - Sinus tachycardia [Unknown]
  - Aorta hypoplasia [Unknown]
  - Cardiac failure [Unknown]
  - Endocarditis [Unknown]
  - Hypoxia [Unknown]
  - Tricuspid valve incompetence [Unknown]
  - Hypophosphataemia [Unknown]
  - Feeding intolerance [Unknown]
  - Cardiac murmur [Unknown]
  - Tachypnoea [Unknown]
  - Hypoplastic left heart syndrome [Unknown]
  - Congenital anomaly [Unknown]
  - Heart disease congenital [Unknown]
  - Mitral valve atresia [Unknown]
  - Hyperbilirubinaemia [Unknown]
  - Failure to thrive [Unknown]
  - Developmental delay [Unknown]
  - Diarrhoea [Unknown]
  - Rhinorrhoea [Unknown]
  - Foetal exposure during pregnancy [Unknown]
  - Hyperdynamic left ventricle [Unknown]
  - Cardiac disorder [Unknown]
  - Proteinuria [Unknown]
  - Feeding disorder [Unknown]
  - Dysphagia [Unknown]
  - Fatigue [Unknown]
  - Anxiety [Unknown]
  - Nasopharyngitis [Unknown]
  - Ventricular septal defect [Unknown]
  - Single umbilical artery [Unknown]
  - Premature baby [Unknown]
  - Rash [Unknown]
  - Right atrial dilatation [Unknown]
  - Headache [Unknown]
